FAERS Safety Report 23235595 (Version 1)
Quarter: 2023Q4

REPORT INFORMATION
  Report Type: Spontaneous
  Country: CN (occurrence: CN)
  Receive Date: 20231128
  Receipt Date: 20231128
  Transmission Date: 20240110
  Serious: Yes (Life-Threatening)
  Sender: FDA-Public Use
  Company Number: CN-BAYER-2023A169908

PATIENT
  Age: 35 Year
  Sex: Male
  Weight: 70 kg

DRUGS (2)
  1. ULTRAVIST [Suspect]
     Active Substance: IOPROMIDE
     Indication: Computerised tomogram abdomen
     Dosage: 100 ML, ONCE
     Route: 042
     Dates: start: 20231125, end: 20231125
  2. ULTRAVIST [Suspect]
     Active Substance: IOPROMIDE
     Indication: Pancreatitis acute

REACTIONS (13)
  - Anaphylactic shock [Recovering/Resolving]
  - Dizziness [Recovering/Resolving]
  - Pruritus [Recovering/Resolving]
  - Swelling face [Recovered/Resolved]
  - Swelling of eyelid [Recovered/Resolved]
  - Flushing [Recovering/Resolving]
  - Rash erythematous [Recovering/Resolving]
  - Respiratory rate increased [None]
  - Heart rate increased [Recovered/Resolved]
  - Contrast media allergy [Recovering/Resolving]
  - Nausea [Recovering/Resolving]
  - Blood pressure decreased [Recovered/Resolved]
  - Sinus rhythm [None]

NARRATIVE: CASE EVENT DATE: 20231125
